FAERS Safety Report 6684815-5 (Version None)
Quarter: 2010Q2

REPORT INFORMATION
  Report Type: 
  Country: None (occurrence: None)
  Receive Date: 20100414
  Receipt Date: 20100407
  Transmission Date: 20101027
  Serious: Yes (Death)
  Sender: FDA-Public Use
  Company Number: 7000535

PATIENT
  Sex: Female

DRUGS (1)
  1. CETROTIDE [Suspect]
     Indication: OVARIAN CANCER
     Dosage: 3 MG
     Dates: start: 20080101

REACTIONS (1)
  - OFF LABEL USE [None]
